FAERS Safety Report 5060800-4 (Version None)
Quarter: 2006Q3

REPORT INFORMATION
  Report Type: 
  Country: None (occurrence: None)
  Receive Date: 20060719
  Receipt Date: 20060719
  Transmission Date: 20061208
  Serious: Yes (Hospitalization)
  Sender: FDA-Public Use
  Company Number: None

PATIENT
  Age: 63 Year
  Sex: Female
  Weight: 98.5 kg

DRUGS (5)
  1. ETODOLAC [Suspect]
     Indication: ARTHRALGIA
     Dosage: 400MG BID PO  SEVERAL YEARS
     Route: 048
  2. ETODOLAC [Suspect]
     Indication: BACK PAIN
     Dosage: 400MG BID PO  SEVERAL YEARS
     Route: 048
  3. ETODOLAC [Suspect]
     Indication: OSTEOARTHRITIS
     Dosage: 400MG BID PO  SEVERAL YEARS
     Route: 048
  4. FLUCONAZOLE [Suspect]
     Indication: LIP AND/OR ORAL CAVITY CANCER
     Dosage: 100MG QD PO
     Route: 048
  5. FLUCONAZOLE [Suspect]
     Indication: ORAL CANDIDIASIS
     Dosage: 100MG QD PO
     Route: 048

REACTIONS (1)
  - RENAL FAILURE ACUTE [None]
